FAERS Safety Report 18898333 (Version 1)
Quarter: 2021Q1

REPORT INFORMATION
  Report Type: Spontaneous
  Country: US (occurrence: US)
  Receive Date: 20210213
  Receipt Date: 20210213
  Transmission Date: 20210420
  Serious: Yes (Hospitalization)
  Sender: FDA-Public Use
  Company Number: None

PATIENT
  Sex: Female

DRUGS (1)
  1. TEMOZOLOMIDE. [Suspect]
     Active Substance: TEMOZOLOMIDE
     Dates: end: 20200901

REACTIONS (8)
  - Central nervous system necrosis [None]
  - Neoplasm progression [None]
  - Brain neoplasm [None]
  - Radiation necrosis [None]
  - Hemiparesis [None]
  - Headache [None]
  - Glioblastoma [None]
  - Disease progression [None]

NARRATIVE: CASE EVENT DATE: 20210112
